FAERS Safety Report 15741087 (Version 1)
Quarter: 2018Q4

REPORT INFORMATION
  Report Type: Spontaneous
  Country: US (occurrence: US)
  Receive Date: 20181204
  Receipt Date: 20181204
  Transmission Date: 20190205
  Serious: No
  Sender: FDA-Public Use
  Company Number: None

PATIENT
  Age: 58 Year
  Sex: Female

DRUGS (1)
  1. CAPECITABINE500MG ROXANE [Suspect]
     Active Substance: CAPECITABINE
     Indication: NEOPLASM MALIGNANT
     Dosage: 3TAB AM 2TAB PM?
     Route: 048

REACTIONS (3)
  - Haemorrhage [None]
  - Dry skin [None]
  - Skin ulcer [None]

NARRATIVE: CASE EVENT DATE: 201811
